FAERS Safety Report 18362215 (Version 2)
Quarter: 2020Q4

REPORT INFORMATION
  Report Type: Spontaneous
  Country: IT (occurrence: IT)
  Receive Date: 20201008
  Receipt Date: 20201015
  Transmission Date: 20210114
  Serious: Yes (Other)
  Sender: FDA-Public Use
  Company Number: IT-PFIZER INC-2020384474

PATIENT
  Age: 63 Year
  Sex: Female

DRUGS (3)
  1. FLUOROURACIL. [Suspect]
     Active Substance: FLUOROURACIL
     Indication: GASTRIC CANCER
     Dosage: UNK, CYCLIC
  2. FOLINIC ACID [Suspect]
     Active Substance: LEUCOVORIN
     Indication: GASTRIC CANCER
     Dosage: UNK, CYCLIC
  3. OXALIPLATIN. [Suspect]
     Active Substance: OXALIPLATIN
     Indication: GASTRIC CANCER
     Dosage: UNK, CYCLIC

REACTIONS (2)
  - Vomiting [Unknown]
  - Toxicity to various agents [Unknown]
